FAERS Safety Report 12711137 (Version 1)
Quarter: 2016Q3

REPORT INFORMATION
  Report Type: Spontaneous
  Country: US (occurrence: US)
  Receive Date: 20160902
  Receipt Date: 20160902
  Transmission Date: 20161109
  Serious: Yes (Hospitalization)
  Sender: FDA-Public Use
  Company Number: None

PATIENT
  Age: 69 Year
  Sex: Male
  Weight: 132.7 kg

DRUGS (1)
  1. CHOLETEC [Suspect]
     Active Substance: TECHNETIUM TC-99M MEBROFENIN

REACTIONS (3)
  - Acute kidney injury [None]
  - Renal tubular necrosis [None]
  - Contrast media reaction [None]

NARRATIVE: CASE EVENT DATE: 20160725
